FAERS Safety Report 17295245 (Version 2)
Quarter: 2020Q1

REPORT INFORMATION
  Report Type: Spontaneous
  Country: US (occurrence: US)
  Receive Date: 20200121
  Receipt Date: 20200131
  Transmission Date: 20200409
  Serious: No
  Sender: FDA-Public Use
  Company Number: US-PFIZER INC-2020023310

PATIENT
  Sex: Male

DRUGS (3)
  1. ADVIL [Suspect]
     Active Substance: IBUPROFEN
     Dosage: 600 MG, UNK
     Route: 048
  2. ADVIL [Suspect]
     Active Substance: IBUPROFEN
     Dosage: 2 DF, UNK
  3. ADVIL [Suspect]
     Active Substance: IBUPROFEN
     Dosage: 800 MG, UNK
     Route: 048

REACTIONS (2)
  - Therapeutic product effect decreased [Unknown]
  - Intentional product misuse [Unknown]
